FAERS Safety Report 6821270-6 (Version None)
Quarter: 2010Q3

REPORT INFORMATION
  Report Type: 
  Country: None (occurrence: None)
  Receive Date: 20100707
  Receipt Date: 20080509
  Transmission Date: 20110219
  Serious: No
  Sender: FDA-Public Use
  Company Number: US-PFIZER INC-2008041207

PATIENT
  Sex: Female
  Weight: 70 kg

DRUGS (3)
  1. ZOLOFT [Suspect]
     Indication: ANXIETY
     Dates: start: 20080508
  2. ATIVAN [Concomitant]
  3. LUMIGAN [Concomitant]

REACTIONS (4)
  - DIZZINESS [None]
  - FEELING ABNORMAL [None]
  - HYPERHIDROSIS [None]
  - TREMOR [None]
